FAERS Safety Report 5379565-1 (Version None)
Quarter: 2007Q3

REPORT INFORMATION
  Report Type: 
  Country: None (occurrence: None)
  Receive Date: 20070703
  Receipt Date: 20070628
  Transmission Date: 20080115
  Serious: Yes (Other)
  Sender: FDA-Public Use
  Company Number: THQ2007A00620

PATIENT
  Age: 82 Year
  Sex: Female

DRUGS (3)
  1. ACTOS [Suspect]
     Dosage: 15 MG UNK.
     Dates: start: 20070101
  2. METFORMIN HCL [Concomitant]
  3. GLYBURIDE [Concomitant]

REACTIONS (1)
  - PULMONARY OEDEMA [None]
